FAERS Safety Report 7260774-1 (Version None)
Quarter: 2011Q1

REPORT INFORMATION
  Report Type: 
  Country: None (occurrence: None)
  Receive Date: 20110130
  Receipt Date: 20101226
  Transmission Date: 20110831
  Serious: No
  Sender: FDA-Public Use
  Company Number: US-ABBOTT-10P-163-0693617-00

PATIENT
  Age: 62 Year
  Sex: Male

DRUGS (12)
  1. HUMIRA [Suspect]
     Indication: PSORIASIS
     Dates: start: 20100901
  2. EFFEXOR [Concomitant]
     Indication: DEPRESSION
  3. DOXAPINE [Concomitant]
     Indication: PROSTATIC DISORDER
  4. KLONOPIN [Concomitant]
     Indication: MAJOR DEPRESSION
     Dosage: 1-2 MG DAILY
  5. BUSPAR [Concomitant]
     Indication: ANXIETY DISORDER
  6. KLONOPIN [Concomitant]
     Indication: ANXIETY DISORDER
  7. TRAZODONE [Concomitant]
     Indication: INSOMNIA
     Dosage: AT BED TIME
  8. HYDROCHLOROTHIAZIDE [Concomitant]
     Indication: DIURETIC THERAPY
     Dosage: FOR WATER
  9. WELLBUTRIN [Concomitant]
     Indication: MAJOR DEPRESSION
     Dosage: DAILY
  10. WELLBUTRIN [Concomitant]
     Indication: ANXIETY DISORDER
  11. BUSPAR [Concomitant]
     Indication: MAJOR DEPRESSION
  12. FINASTERIDE [Concomitant]
     Indication: PROSTATIC DISORDER

REACTIONS (4)
  - ANKLE FRACTURE [None]
  - SKIN PLAQUE [None]
  - PSORIASIS [None]
  - FALL [None]
